FAERS Safety Report 8318201-9 (Version None)
Quarter: 2012Q2

REPORT INFORMATION
  Report Type: 
  Country: None (occurrence: None)
  Receive Date: 20120427
  Receipt Date: 20120423
  Transmission Date: 20120825
  Serious: Yes (Other)
  Sender: FDA-Public Use
  Company Number: US-ROCHE-1062531

PATIENT
  Sex: Female
  Weight: 76.272 kg

DRUGS (1)
  1. AVASTIN [Suspect]
     Indication: SMALL CELL LUNG CANCER STAGE UNSPECIFIED
     Route: 042
     Dates: start: 20111001, end: 20120221

REACTIONS (1)
  - PERIODONTAL DISEASE [None]
